FAERS Safety Report 7612336-1 (Version None)
Quarter: 2011Q3

REPORT INFORMATION
  Report Type: 
  Country: None (occurrence: None)
  Receive Date: 20110715
  Receipt Date: 20110706
  Transmission Date: 20111222
  Serious: Yes (Hospitalization)
  Sender: FDA-Public Use
  Company Number: BR-ASTRAZENECA-2011SE40981

PATIENT
  Age: 92 Year
  Sex: Female
  Weight: 48 kg

DRUGS (10)
  1. NEXIUM [Suspect]
     Route: 048
  2. ALPRAZOLAM [Concomitant]
     Indication: INSOMNIA
     Route: 048
     Dates: start: 20000101
  3. ROHYPNOL [Concomitant]
     Indication: INSOMNIA
     Route: 048
     Dates: start: 20000101
  4. LOSARTAN POTASSIUM [Suspect]
     Route: 048
  5. EXELON [Concomitant]
     Indication: DEMENTIA ALZHEIMER'S TYPE
     Route: 061
     Dates: start: 20000101, end: 20110401
  6. ANCORON [Concomitant]
     Indication: ARRHYTHMIA
     Route: 048
     Dates: start: 20000101
  7. DIOSMIN [Concomitant]
     Indication: MUSCLE SPASMS
     Dosage: BID
     Route: 048
     Dates: start: 20000101
  8. NEXIUM [Suspect]
     Indication: GASTROOESOPHAGEAL REFLUX DISEASE
     Route: 048
     Dates: start: 20000101, end: 20080101
  9. LOSARTAN POTASSIUM [Suspect]
     Indication: HYPERTENSION
     Route: 048
     Dates: start: 20050101, end: 20070101
  10. PROLOPA [Suspect]
     Indication: PARKINSON'S DISEASE
     Route: 048
     Dates: start: 20020101, end: 20080101

REACTIONS (8)
  - TREMOR [None]
  - BRONCHOPNEUMONIA [None]
  - PARKINSON'S DISEASE [None]
  - MUSCULOSKELETAL STIFFNESS [None]
  - URINARY TRACT INFECTION [None]
  - HYPOTENSION [None]
  - WEIGHT DECREASED [None]
  - HYPERTENSION [None]
